FAERS Safety Report 5487334-7 (Version None)
Quarter: 2007Q4

REPORT INFORMATION
  Report Type: 
  Country: None (occurrence: None)
  Receive Date: 20071016
  Receipt Date: 20071004
  Transmission Date: 20080405
  Serious: Yes (Other)
  Sender: FDA-Public Use
  Company Number: US-PFIZER INC-2007057885

PATIENT
  Sex: Female
  Weight: 90.7 kg

DRUGS (7)
  1. ARTHROTEC [Suspect]
     Indication: ARTHRITIS
     Dosage: TEXT:50/0.2MG; 150/600MG
     Route: 048
     Dates: start: 20060601, end: 20070712
  2. ARTHROTEC [Suspect]
     Indication: SPINAL OSTEOARTHRITIS
  3. ULTRAM [Concomitant]
  4. ADVAIR DISKUS 100/50 [Concomitant]
  5. LISINOPRIL [Concomitant]
  6. LOZOL [Concomitant]
  7. ALBUTEROL [Concomitant]
     Route: 055

REACTIONS (3)
  - CONDITION AGGRAVATED [None]
  - DRUG INEFFECTIVE [None]
  - OSTEOARTHRITIS [None]
